FAERS Safety Report 4619370-4 (Version None)
Quarter: 2005Q2

REPORT INFORMATION
  Report Type: 
  Country: None (occurrence: None)
  Receive Date: 20050321
  Receipt Date: 20040326
  Transmission Date: 20051028
  Serious: Yes (Hospitalization, Other)
  Sender: FDA-Public Use
  Company Number: 2004-03-1953

PATIENT
  Age: 52 Year
  Sex: Female

DRUGS (6)
  1. PEG-INTRON (PEGINTERFERON ALFA-2B) INJECTABLE POWDER [Suspect]
     Dosage: SUBCUTANEOUS
     Route: 058
     Dates: start: 20040130, end: 20040319
  2. REBETOL [Suspect]
     Dosage: ORAL
     Route: 048
     Dates: start: 20040130, end: 20040319
  3. INSULIN PUMP [Concomitant]
  4. HUMALOG (INSULIN ANALOG) [Concomitant]
  5. DIOVAN [Concomitant]
  6. PROMETHAZINE HYDROCHLORIDE TABLETS [Concomitant]

REACTIONS (3)
  - ANAEMIA [None]
  - SYNCOPE [None]
  - WEIGHT INCREASED [None]
